FAERS Safety Report 6256477-2 (Version None)
Quarter: 2009Q3

REPORT INFORMATION
  Report Type: 
  Country: None (occurrence: None)
  Receive Date: 20090706
  Receipt Date: 20090605
  Transmission Date: 20100115
  Serious: No
  Sender: FDA-Public Use
  Company Number: US-BAYER-200916894NA

PATIENT
  Sex: Female
  Weight: 66 kg

DRUGS (3)
  1. MIRENA [Suspect]
     Indication: CONTRACEPTION
     Dosage: CONTINUOUS
     Route: 015
     Dates: start: 20090128, end: 20090317
  2. MIRENA [Suspect]
     Dosage: CONTINUOUS DELIVERY
     Route: 015
     Dates: start: 20090317
  3. CYTOTEC [Concomitant]
     Indication: NULLIPAROUS
     Route: 067

REACTIONS (2)
  - DEVICE BREAKAGE [None]
  - IUCD COMPLICATION [None]
